FAERS Safety Report 9350252 (Version 2)
Quarter: 2013Q2

REPORT INFORMATION
  Report Type: Spontaneous
  Country: US (occurrence: US)
  Receive Date: 20130617
  Receipt Date: 20130618
  Transmission Date: 20140414
  Serious: Yes (Other)
  Sender: FDA-Public Use
  Company Number: US-RB-054966-13

PATIENT
  Age: 66 Year
  Sex: Male

DRUGS (1)
  1. MUCINEX D MAXIMUM STRENGTH [Suspect]
     Indication: RESPIRATORY TRACT CONGESTION
     Dosage: DRUG STOP ON 02-JUN-2013.
     Route: 048
     Dates: start: 20130529

REACTIONS (3)
  - Dysuria [Recovered/Resolved]
  - Dysuria [Recovered/Resolved]
  - Urinary retention [Recovered/Resolved]
